FAERS Safety Report 17561097 (Version 1)
Quarter: 2020Q1

REPORT INFORMATION
  Report Type: Spontaneous
  Country: US (occurrence: US)
  Receive Date: 20200312
  Receipt Date: 20200312
  Transmission Date: 20200409
  Serious: Yes (Hospitalization)
  Sender: FDA-Public Use
  Company Number: None

PATIENT
  Age: 62 Year
  Sex: Female

DRUGS (22)
  1. ATORVASTATIN [Concomitant]
     Active Substance: ATORVASTATIN
  2. LEVOFLOXACIN. [Concomitant]
     Active Substance: LEVOFLOXACIN
  3. PREDNISONE. [Concomitant]
     Active Substance: PREDNISONE
  4. SUDAFED 12 HOUR [Concomitant]
     Active Substance: PSEUDOEPHEDRINE HYDROCHLORIDE
  5. VENTOLIN HFA AER [Concomitant]
  6. ASPIRIN. [Concomitant]
     Active Substance: ASPIRIN
  7. IMODIUM A-D [Concomitant]
     Active Substance: LOPERAMIDE HYDROCHLORIDE
  8. METOPRIOL SUC [Concomitant]
  9. SUCRALFATE. [Concomitant]
     Active Substance: SUCRALFATE
  10. HYDROCO/APAP [Concomitant]
     Active Substance: ACETAMINOPHEN\HYDROCODONE
  11. PROMETHY/COD [Concomitant]
  12. IPRATROPIUM [Concomitant]
     Active Substance: IPRATROPIUM
  13. SOD CHLORIDE [Concomitant]
  14. SUDAFED CONG [Concomitant]
  15. ESBRIET [Suspect]
     Active Substance: PIRFENIDONE
     Indication: IDIOPATHIC PULMONARY FIBROSIS
     Route: 048
     Dates: start: 20191115
  16. OMEPRAZOLE. [Concomitant]
     Active Substance: OMEPRAZOLE
  17. ESCITALOPRAM [Concomitant]
     Active Substance: ESCITALOPRAM OXALATE
  18. GABAPENTIN. [Concomitant]
     Active Substance: GABAPENTIN
  19. NYSTOP [Concomitant]
     Active Substance: NYSTATIN
  20. ROSUVASTATIN. [Concomitant]
     Active Substance: ROSUVASTATIN
  21. FLUCONAZOLE. [Concomitant]
     Active Substance: FLUCONAZOLE
  22. FUROSEMIDE. [Concomitant]
     Active Substance: FUROSEMIDE

REACTIONS (3)
  - Pneumonia [None]
  - Inflammation [None]
  - Oxygen saturation abnormal [None]

NARRATIVE: CASE EVENT DATE: 20200303
